FAERS Safety Report 10556497 (Version 2)
Quarter: 2014Q4

REPORT INFORMATION
  Report Type: Report from Study
  Country: US (occurrence: US)
  Receive Date: 20141031
  Receipt Date: 20141031
  Transmission Date: 20150529
  Serious: Yes (Other)
  Sender: FDA-Public Use
  Company Number: US-ASTRAZENECA-2014SE73026

PATIENT
  Sex: Female

DRUGS (6)
  1. JAMUVIA [Concomitant]
  2. AMLORIDE [Concomitant]
  3. KLOR CON [Concomitant]
  4. XARELTO [Concomitant]
     Active Substance: RIVAROXABAN
  5. PERCOCET [Concomitant]
     Active Substance: ACETAMINOPHEN\OXYCODONE HYDROCHLORIDE
  6. CAPRELSA [Suspect]
     Active Substance: VANDETANIB
     Indication: MEDULLARY THYROID CANCER
     Route: 048

REACTIONS (3)
  - Fatigue [Unknown]
  - Frequent bowel movements [Unknown]
  - Liver function test abnormal [Unknown]
